FAERS Safety Report 23825432 (Version 1)
Quarter: 2024Q2

REPORT INFORMATION
  Report Type: Spontaneous
  Country: US (occurrence: None)
  Receive Date: 20240506
  Receipt Date: 20240506
  Transmission Date: 20240716
  Serious: Yes (Hospitalization)
  Sender: FDA-Public Use
  Company Number: None

PATIENT
  Sex: Female

DRUGS (1)
  1. DROXIDOPA [Suspect]
     Active Substance: DROXIDOPA
     Indication: Orthostatic hypotension
     Dosage: FREQUENCY : 3 TIMES A DAY;?
     Route: 048

REACTIONS (7)
  - Blood pressure increased [None]
  - Dysphemia [None]
  - Confusional state [None]
  - Dizziness [None]
  - Incoherent [None]
  - Agranulocytosis [None]
  - Leukopenia [None]
